FAERS Safety Report 16099583 (Version 3)
Quarter: 2019Q2

REPORT INFORMATION
  Report Type: Other
  Country: US (occurrence: US)
  Receive Date: 20190321
  Receipt Date: 20190425
  Transmission Date: 20190711
  Serious: Yes (Death, Hospitalization, Other)
  Sender: FDA-Public Use
  Company Number: US-ACORDA-ACO_157624_2019

PATIENT
  Sex: Male

DRUGS (3)
  1. AMPYRA [Suspect]
     Active Substance: DALFAMPRIDINE
     Indication: GAIT DISTURBANCE
     Dosage: 10 MILLIGRAM, BID
     Route: 048
     Dates: end: 20190224
  2. AMPYRA [Suspect]
     Active Substance: DALFAMPRIDINE
     Indication: MULTIPLE SCLEROSIS
  3. AVONEX [Concomitant]
     Active Substance: INTERFERON BETA-1A
     Dosage: UNK, POWDER
     Route: 065
     Dates: start: 2002, end: 201810

REACTIONS (12)
  - Aphasia [Unknown]
  - Condition aggravated [Unknown]
  - Pneumonia [Fatal]
  - Adverse event [Unknown]
  - Mental status changes [Unknown]
  - Tremor [Unknown]
  - Brain oedema [Fatal]
  - Decreased activity [Unknown]
  - Dysarthria [Unknown]
  - Hallucination [Unknown]
  - Lung disorder [Fatal]
  - Multiple sclerosis [Fatal]

NARRATIVE: CASE EVENT DATE: 201901
